FAERS Safety Report 4649080-9 (Version None)
Quarter: 2005Q2

REPORT INFORMATION
  Report Type: 
  Country: None (occurrence: None)
  Receive Date: 20050429
  Receipt Date: 20041117
  Transmission Date: 20051028
  Serious: Yes (Hospitalization)
  Sender: FDA-Public Use
  Company Number: US-GLAXOSMITHKLINE-A0534332A

PATIENT
  Age: 72 Year
  Sex: Female

DRUGS (6)
  1. PAXIL CR [Suspect]
     Indication: DEPRESSION
     Dosage: 12.5MG AT NIGHT
     Route: 048
     Dates: start: 20030405, end: 20030410
  2. ZESTRIL [Concomitant]
     Indication: HYPERTENSION
     Dosage: 20MG PER DAY
     Route: 048
  3. XANAX [Concomitant]
     Indication: ANXIETY
     Dosage: .25MG THREE TIMES PER DAY
     Route: 048
  4. LIMBITROL [Concomitant]
     Indication: DEPRESSION
     Route: 048
  5. TAMBOCOR [Concomitant]
     Indication: ARRHYTHMIA
     Route: 048
  6. COUMADIN [Concomitant]
     Indication: VENOUS STASIS
     Dosage: 2.5MG PER DAY
     Route: 048

REACTIONS (13)
  - ASTHENIA [None]
  - BALANCE DISORDER [None]
  - CHILLS [None]
  - CONSTIPATION [None]
  - CRYING [None]
  - DIARRHOEA [None]
  - DISTURBANCE IN ATTENTION [None]
  - INSOMNIA [None]
  - MYOCARDIAL INFARCTION [None]
  - NAUSEA [None]
  - SUICIDAL IDEATION [None]
  - TREMOR [None]
  - VERTIGO [None]
